FAERS Safety Report 4481472-3 (Version None)
Quarter: 2004Q3

REPORT INFORMATION
  Report Type: 
  Country: None (occurrence: None)
  Receive Date: 20040923
  Receipt Date: 20040610
  Transmission Date: 20050211
  Serious: No
  Sender: FDA-Public Use
  Company Number: USA040669942

PATIENT
  Age: 72 Year
  Sex: Female

DRUGS (8)
  1. FORTEO [Suspect]
     Indication: OSTEOPOROSIS
     Dates: start: 20040201
  2. EVISTA [Concomitant]
  3. ATENOLOL [Concomitant]
  4. ZOCOR [Concomitant]
  5. CHONDROITIN SULFATE [Concomitant]
  6. FIBERCON (POLYCARBOPHIL CALCIUM) [Concomitant]
  7. OSCAL (CALCIUM CARBONATE) [Concomitant]
  8. ASPIRIN [Concomitant]

REACTIONS (3)
  - ALOPECIA [None]
  - SOMNOLENCE [None]
  - STRESS SYMPTOMS [None]
